FAERS Safety Report 16336874 (Version 1)
Quarter: 2019Q2

REPORT INFORMATION
  Report Type: Spontaneous
  Country: US (occurrence: US)
  Receive Date: 20190520
  Receipt Date: 20190520
  Transmission Date: 20190711
  Serious: Yes (Hospitalization)
  Sender: FDA-Public Use
  Company Number: None

PATIENT
  Age: 52 Year
  Sex: Male

DRUGS (14)
  1. AMOXICILLIN. [Concomitant]
     Active Substance: AMOXICILLIN
  2. LYNOX [Concomitant]
  3. ZOLPIDEM [Concomitant]
     Active Substance: ZOLPIDEM\ZOLPIDEM TARTRATE
  4. AMBEIN [Concomitant]
  5. WARFARIN [Concomitant]
     Active Substance: WARFARIN
  6. FAMCICLOVIR. [Concomitant]
     Active Substance: FAMCICLOVIR
  7. MEXILETINE [Concomitant]
     Active Substance: MEXILETINE
  8. PAROXETINE. [Concomitant]
     Active Substance: PAROXETINE
  9. TADALAFIL. [Suspect]
     Active Substance: TADALAFIL
     Indication: HYPERTENSION
     Route: 048
     Dates: start: 20190212
  10. PRIM/LEV [Concomitant]
  11. SEROQUEL [Concomitant]
     Active Substance: QUETIAPINE FUMARATE
  12. DIGOX [Concomitant]
     Active Substance: DIGOXIN
  13. LEXAPRO [Concomitant]
     Active Substance: ESCITALOPRAM OXALATE
  14. NADOLOL. [Concomitant]
     Active Substance: NADOLOL

REACTIONS (3)
  - Loss of consciousness [None]
  - Lung disorder [None]
  - Tachycardia [None]

NARRATIVE: CASE EVENT DATE: 20190423
